FAERS Safety Report 8385985-3 (Version None)
Quarter: 2012Q2

REPORT INFORMATION
  Report Type: 
  Country: None (occurrence: None)
  Receive Date: 20120525
  Receipt Date: 20120521
  Transmission Date: 20120825
  Serious: Yes (Other)
  Sender: FDA-Public Use
  Company Number: DE-JNJFOC-20120509022

PATIENT
  Sex: Female

DRUGS (3)
  1. MINOXIDIL [Suspect]
     Route: 061
  2. MINOXIDIL [Suspect]
     Indication: ALOPECIA
     Route: 061
     Dates: start: 20120428, end: 20120510
  3. LOSARTAN POTASSIUM [Concomitant]
     Indication: HYPERTENSION

REACTIONS (7)
  - APPLICATION SITE ERYTHEMA [None]
  - SWELLING FACE [None]
  - SKIN EXFOLIATION [None]
  - APPLICATION SITE SWELLING [None]
  - URTICARIA [None]
  - DRY SKIN [None]
  - APPLICATION SITE WARMTH [None]
